FAERS Safety Report 5982035-0 (Version None)
Quarter: 2008Q4

REPORT INFORMATION
  Report Type: 
  Country: None (occurrence: None)
  Receive Date: 20081202
  Receipt Date: 20081124
  Transmission Date: 20090506
  Serious: Yes (Other)
  Sender: FDA-Public Use
  Company Number: JPI-P-005318

PATIENT
  Age: 69 Year
  Sex: Male

DRUGS (7)
  1. XYREM [Suspect]
     Indication: ADVANCED SLEEP PHASE
     Dosage: 5 GM (2.5 GM, 2 IN 1 D), ORAL, 6 GM (3 GM, 2 IN 1 D), ORAL, 7 GM (3.5 GM, 2 IN 1 D), ORAL
     Route: 048
     Dates: start: 20080707, end: 20080101
  2. XYREM [Suspect]
     Indication: ADVANCED SLEEP PHASE
     Dosage: 5 GM (2.5 GM, 2 IN 1 D), ORAL, 6 GM (3 GM, 2 IN 1 D), ORAL, 7 GM (3.5 GM, 2 IN 1 D), ORAL
     Route: 048
     Dates: start: 20080101
  3. XYREM [Suspect]
     Indication: ADVANCED SLEEP PHASE
     Dosage: 5 GM (2.5 GM, 2 IN 1 D), ORAL, 6 GM (3 GM, 2 IN 1 D), ORAL, 7 GM (3.5 GM, 2 IN 1 D), ORAL
     Route: 048
     Dates: start: 20080514
  4. PREGABALIN [Concomitant]
  5. ACETYLSALICYLIC ACID SRT [Concomitant]
  6. VITAMINS [Concomitant]
  7. FIBER PILL [Concomitant]

REACTIONS (4)
  - ASTHENIA [None]
  - CARDIAC PACEMAKER INSERTION [None]
  - HEART RATE DECREASED [None]
  - SYNCOPE [None]
